FAERS Safety Report 9308176 (Version 1)
Quarter: 2013Q2

REPORT INFORMATION
  Report Type: Report from Study
  Country: DE (occurrence: DE)
  Receive Date: 20130524
  Receipt Date: 20130524
  Transmission Date: 20140414
  Serious: Yes (Hospitalization, Congenital Anomaly)
  Sender: FDA-Public Use
  Company Number: DE-ABBOTT-13P-062-1093002-00

PATIENT
  Sex: Male

DRUGS (2)
  1. HUMIRA [Suspect]
     Indication: PATERNAL DRUGS AFFECTING FOETUS
     Route: 050
  2. HUMIRA [Suspect]
     Indication: FOETAL EXPOSURE DURING PREGNANCY

REACTIONS (3)
  - Heart disease congenital [Unknown]
  - Paternal drugs affecting foetus [Unknown]
  - Foetal exposure during pregnancy [Unknown]
